FAERS Safety Report 16170899 (Version 8)
Quarter: 2024Q1

REPORT INFORMATION
  Report Type: Spontaneous
  Country: GB (occurrence: GB)
  Receive Date: 20190408
  Receipt Date: 20240104
  Transmission Date: 20240409
  Serious: Yes (Life-Threatening, Hospitalization, Congenital Anomaly, Other)
  Sender: FDA-Public Use
  Company Number: None

PATIENT

DRUGS (19)
  1. COCODAMOL [Suspect]
     Active Substance: ACETAMINOPHEN\CODEINE PHOSPHATE
     Indication: Pelvic pain
     Dosage: UNK (ABUSE,OVERDOSE/ UP TO 4TIMES A DAY; STAGGERED PARACETAMOL OVERDOSE(UNINTENTIONAL) OVER WEEKS AN
     Route: 064
  2. COCODAMOL [Suspect]
     Active Substance: ACETAMINOPHEN\CODEINE PHOSPHATE
     Indication: Back disorder
  3. COCODAMOL [Suspect]
     Active Substance: ACETAMINOPHEN\CODEINE PHOSPHATE
     Indication: Foetal exposure during pregnancy
  4. ACETAMINOPHEN [Suspect]
     Active Substance: ACETAMINOPHEN
     Indication: Pelvic pain
     Dosage: UNK, QID (UP TO 4TIMES A DAY)
     Route: 064
  5. ACETAMINOPHEN [Suspect]
     Active Substance: ACETAMINOPHEN
     Indication: Foetal exposure during pregnancy
  6. ACETAMINOPHEN [Suspect]
     Active Substance: ACETAMINOPHEN
     Indication: Back disorder
  7. PERFALGAN [Suspect]
     Active Substance: ACETAMINOPHEN
     Indication: Pelvic pain
     Dosage: UNK, QID (UP TO FOUR TIMES A DAY, PARENT: INDICATION: BACK DISORDER); UNK (PARENT: INDICATION: PELVI
     Route: 064
  8. PERFALGAN [Suspect]
     Active Substance: ACETAMINOPHEN
     Indication: Back disorder
  9. PERFALGAN [Suspect]
     Active Substance: ACETAMINOPHEN
     Indication: Foetal exposure during pregnancy
  10. CEPHRADINE [Concomitant]
     Active Substance: CEPHRADINE
     Indication: Pyelonephritis
     Dosage: UNK
     Route: 064
  11. CEPHRADINE [Concomitant]
     Active Substance: CEPHRADINE
     Indication: Foetal exposure during pregnancy
  12. ENOXAPARIN [Concomitant]
     Active Substance: ENOXAPARIN
     Indication: Foetal exposure during pregnancy
     Dosage: UNK
     Route: 064
  13. FLUOXETINE [Concomitant]
     Active Substance: FLUOXETINE HYDROCHLORIDE
     Indication: Foetal exposure during pregnancy
     Dosage: UNK
     Route: 064
  14. METRONIDAZOLE [Concomitant]
     Active Substance: METRONIDAZOLE
     Indication: Pyelonephritis
     Dosage: UNK
     Route: 064
  15. METRONIDAZOLE [Concomitant]
     Active Substance: METRONIDAZOLE
     Indication: Foetal exposure during pregnancy
  16. MORPHINE HYDROCHLORIDE [Concomitant]
     Active Substance: MORPHINE HYDROCHLORIDE
     Indication: Product used for unknown indication
     Route: 064
  17. CODEINE [Suspect]
     Active Substance: CODEINE
     Indication: Back disorder
     Dosage: UNK, UNK, TABLET, QID (4X/DAY (QID))
     Route: 064
  18. CODEINE [Suspect]
     Active Substance: CODEINE
     Indication: Pelvic pain
  19. CODEINE [Suspect]
     Active Substance: CODEINE
     Indication: Foetal exposure during pregnancy

REACTIONS (34)
  - Developmental delay [Not Recovered/Not Resolved]
  - Premature baby [Unknown]
  - Tremor [Unknown]
  - Hepatic function abnormal [Recovered/Resolved]
  - Malaise [Unknown]
  - Gait inability [Unknown]
  - Foetal arrhythmia [Recovered/Resolved]
  - Hepatotoxicity [Recovered/Resolved]
  - Heart rate irregular [Recovered/Resolved]
  - Foetal monitoring abnormal [Unknown]
  - Respiratory distress [Recovered/Resolved]
  - Liver function test abnormal [Recovered/Resolved]
  - Drug withdrawal syndrome neonatal [Recovered/Resolved]
  - Jaundice neonatal [Recovered/Resolved]
  - Aphasia [Unknown]
  - Dependence [Recovered/Resolved]
  - Incubator therapy [Unknown]
  - Gingival discomfort [Unknown]
  - Low birth weight baby [Unknown]
  - Hepatic enzyme increased [Recovered/Resolved]
  - Live birth [Unknown]
  - Feeling guilty [Unknown]
  - Crying [Unknown]
  - Asthenia [Unknown]
  - Asthenopia [Unknown]
  - Fear of death [Unknown]
  - Fear [Unknown]
  - Premature labour [Unknown]
  - Liver disorder [Unknown]
  - Hepatic failure [Recovered/Resolved]
  - Uterine hypertonus [Unknown]
  - Depressed level of consciousness [Unknown]
  - Consciousness fluctuating [Unknown]
  - Language disorder [Unknown]
